FAERS Safety Report 8895176 (Version 1)
Quarter: 2012Q4

REPORT INFORMATION
  Report Type: 
  Country: US (occurrence: US)
  Receive Date: 20121107
  Receipt Date: 20121107
  Transmission Date: 20130627
  Serious: No
  Sender: FDA-Public Use
  Company Number: US-AMGEN-USASP2011048817

PATIENT
  Age: 54 Year
  Sex: Female
  Weight: 73.92 kg

DRUGS (9)
  1. ENBREL [Suspect]
     Indication: PRODUCT USED FOR UNKNOWN INDICATION
     Dosage: 50 mg, qwk
     Route: 058
  2. CENTRUM                            /00554501/ [Concomitant]
     Route: 048
  3. METHOTREXATE [Concomitant]
     Dosage: 2.5 mg, UNK
     Route: 048
  4. PREDNISONE [Concomitant]
     Dosage: 1 mg, UNK
     Route: 048
  5. FOLIC ACID [Concomitant]
     Dosage: 1 mg, UNK
     Route: 048
  6. FISH OIL [Concomitant]
     Dosage: UNK
     Route: 048
  7. VITAMIN D /00107901/ [Concomitant]
     Dosage: 1000 IU, UNK
     Route: 048
  8. WELCHOL [Concomitant]
     Dosage: 625 mg, UNK
     Route: 048
  9. TYLENOL 8 HOUR [Concomitant]
     Dosage: 650 mg, UNK
     Route: 048

REACTIONS (3)
  - Nausea [Unknown]
  - Injection site pain [Unknown]
  - Injection site bruising [Unknown]
